FAERS Safety Report 23044608 (Version 1)
Quarter: 2023Q4

REPORT INFORMATION
  Report Type: Spontaneous
  Country: GB (occurrence: GB)
  Receive Date: 20231009
  Receipt Date: 20231009
  Transmission Date: 20240109
  Serious: Yes (Disabling)
  Sender: FDA-Public Use
  Company Number: GB-MHRA-MED-202310062039089620-HWRLS

PATIENT
  Age: 46 Year
  Sex: Female

DRUGS (5)
  1. SPIRIVA [Suspect]
     Active Substance: TIOTROPIUM BROMIDE MONOHYDRATE
     Indication: Asthma
  2. BASSETS SOFT AND CHEWY ACTIVE HEALTH MULTIVITAMINS WITH MINERALS [Concomitant]
     Indication: Vitamin B12 abnormal
  3. DESOGESTREL [Concomitant]
     Active Substance: DESOGESTREL
     Indication: Oral contraception
  4. VENTOLIN [Concomitant]
     Active Substance: ALBUTEROL SULFATE
     Indication: Asthma
  5. OMEPRAZOLE [Concomitant]
     Active Substance: OMEPRAZOLE
     Indication: Gastrooesophageal reflux disease

REACTIONS (4)
  - Swollen tongue [Recovered/Resolved]
  - Stomatitis [Recovered/Resolved]
  - Rhinorrhoea [Not Recovered/Not Resolved]
  - Cough [Recovering/Resolving]
